FAERS Safety Report 7253066-8 (Version None)
Quarter: 2011Q1

REPORT INFORMATION
  Report Type: 
  Country: None (occurrence: None)
  Receive Date: 20110129
  Receipt Date: 20100125
  Transmission Date: 20110831
  Serious: No
  Sender: FDA-Public Use
  Company Number: US-ABBOTT-10P-163-0622437-00

PATIENT
  Age: 36 Year
  Sex: Male
  Weight: 88.984 kg

DRUGS (4)
  1. VYTORIN [Concomitant]
     Indication: BLOOD CHOLESTEROL INCREASED
  2. NEXIUM [Concomitant]
     Indication: DYSPEPSIA
     Route: 048
  3. HUMIRA [Suspect]
     Indication: RHEUMATOID ARTHRITIS
     Route: 058
     Dates: start: 20100123
  4. IBUPROFEN [Concomitant]
     Indication: PRODUCT USED FOR UNKNOWN INDICATION

REACTIONS (5)
  - PANIC REACTION [None]
  - RESPIRATORY TRACT CONGESTION [None]
  - NAUSEA [None]
  - ARTHRALGIA [None]
  - DYSPNOEA [None]
